FAERS Safety Report 8548406-3 (Version None)
Quarter: 2012Q3

REPORT INFORMATION
  Report Type: 
  Country: None (occurrence: None)
  Receive Date: 20120717
  Receipt Date: 20120709
  Transmission Date: 20120928
  Serious: Yes (Other)
  Sender: FDA-Public Use
  Company Number: 2012-01051

PATIENT
  Age: 2 Year
  Sex: Female
  Weight: 9.5 kg

DRUGS (6)
  1. RIFAMPICIN [Suspect]
     Indication: TUBERCULOSIS
  2. STREPTOMYCIN [Suspect]
     Indication: TUBERCULOSIS
  3. ETHAMBUTOL HYDROCHLORIDE [Suspect]
     Indication: TUBERCULOSIS
  4. ISONIAZID [Suspect]
     Indication: TUBERCULOSIS
  5. PYRAZINAMIDE [Suspect]
     Indication: TUBERCULOSIS
  6. CIPROFLOXACIN [Suspect]
     Indication: TUBERCULOSIS

REACTIONS (10)
  - IMPAIRED HEALING [None]
  - DRUG INEFFECTIVE [None]
  - OSTEOMYELITIS [None]
  - HEPATOSPLENOMEGALY [None]
  - INJECTION SITE PAIN [None]
  - MULTIPLE-DRUG RESISTANCE [None]
  - PSOAS ABSCESS [None]
  - SPINAL DEFORMITY [None]
  - SPINAL COMPRESSION FRACTURE [None]
  - EXTRADURAL ABSCESS [None]
